FAERS Safety Report 8061488-0 (Version None)
Quarter: 2012Q1

REPORT INFORMATION
  Report Type: 
  Country: None (occurrence: None)
  Receive Date: 20120120
  Receipt Date: 20120117
  Transmission Date: 20120608
  Serious: Yes (Death, Other)
  Sender: FDA-Public Use
  Company Number: US-ASTRAZENECA-2011SE59744

PATIENT
  Age: 84 Year
  Sex: Female

DRUGS (4)
  1. SEROQUEL [Suspect]
     Indication: PSYCHOTIC DISORDER
     Route: 048
     Dates: start: 20070820
  2. TEMAZEPAM [Concomitant]
     Indication: INSOMNIA
     Route: 048
     Dates: start: 20070820
  3. SINEMET [Concomitant]
     Indication: PARKINSON'S DISEASE
     Dosage: 25/250 TID
     Route: 048
     Dates: start: 20070820
  4. ZELAPAR [Concomitant]
     Indication: PARKINSON'S DISEASE
     Route: 048
     Dates: start: 20070820

REACTIONS (5)
  - SEPSIS [None]
  - PNEUMONIA ASPIRATION [None]
  - DEATH [None]
  - ARTHRITIS [None]
  - RENAL FAILURE [None]
